FAERS Safety Report 9495774 (Version 2)
Quarter: 2013Q3

REPORT INFORMATION
  Report Type: Spontaneous
  Country: JP (occurrence: JP)
  Receive Date: 20130903
  Receipt Date: 20130912
  Transmission Date: 20140515
  Serious: Yes (Hospitalization)
  Sender: FDA-Public Use
  Company Number: JP-B.I. PHARMACEUTICALS,INC./RIDGEFIELD-2013-BI-27177NB

PATIENT
  Age: 74 Year
  Sex: Male

DRUGS (8)
  1. PRAZAXA [Suspect]
     Dosage: 300 MG
     Route: 048
  2. EXELON [Suspect]
     Dosage: 13.5 MG
     Route: 062
  3. EXELON [Suspect]
     Dosage: 18 MG
     Route: 062
     Dates: start: 20130826
  4. EXELON [Suspect]
     Dosage: 13.5 MG
     Route: 062
  5. DEPAKENE [Suspect]
     Route: 048
  6. DEPAKENE [Suspect]
     Route: 048
  7. SYMMETREL [Suspect]
     Route: 048
  8. SYMMETREL [Suspect]
     Route: 048

REACTIONS (2)
  - Epilepsy [Recovered/Resolved]
  - Aphagia [Recovered/Resolved]
